FAERS Safety Report 4317206-2 (Version None)
Quarter: 2004Q1

REPORT INFORMATION
  Report Type: 
  Country: None (occurrence: None)
  Receive Date: 20040312
  Receipt Date: 20040303
  Transmission Date: 20041129
  Serious: Yes (Hospitalization, Disabling)
  Sender: FDA-Public Use
  Company Number: 2004UW03949

PATIENT
  Age: 62 Year
  Sex: Female

DRUGS (2)
  1. LISINOPRIL [Suspect]
  2. METOPROLOL SUCCINATE [Suspect]

REACTIONS (5)
  - DEEP VEIN THROMBOSIS [None]
  - LEG CRUSHING [None]
  - PULMONARY THROMBOSIS [None]
  - ROAD TRAFFIC ACCIDENT [None]
  - THROMBOSIS [None]
